FAERS Safety Report 23951986 (Version 4)
Quarter: 2024Q3

REPORT INFORMATION
  Report Type: Spontaneous
  Country: US (occurrence: US)
  Receive Date: 20240607
  Receipt Date: 20240822
  Transmission Date: 20241016
  Serious: No
  Sender: PFIZER
  Company Number: US-PFIZER INC-202400187568

PATIENT
  Age: 77 Year
  Sex: Female

DRUGS (1)
  1. ZAVZPRET [Suspect]
     Active Substance: ZAVEGEPANT HYDROCHLORIDE
     Indication: Migraine
     Dosage: ADMINISTER 10 MG INTO AFFECTED NOSTRIL(S) 1 (ONE) TIME EACH DAY AT ONSET OF MIGRAINE
     Route: 045

REACTIONS (2)
  - Dysgeusia [Unknown]
  - Product prescribing issue [Unknown]
